FAERS Safety Report 11678410 (Version 1)
Quarter: 2015Q4

REPORT INFORMATION
  Report Type: Spontaneous
  Country: US (occurrence: US)
  Receive Date: 20151027
  Receipt Date: 20151027
  Transmission Date: 20160304
  Serious: Yes (Hospitalization, Other)
  Sender: FDA-Public Use
  Company Number: US-ELI_LILLY_AND_COMPANY-US201005002243

PATIENT
  Sex: Female

DRUGS (9)
  1. ASPIRIN. [Concomitant]
     Active Substance: ASPIRIN
  2. FORTEO [Suspect]
     Active Substance: TERIPARATIDE
     Dosage: 20 UG, DAILY (1/D)
  3. ENALAPRIL [Concomitant]
     Active Substance: ENALAPRIL
  4. FOLIC ACID. [Concomitant]
     Active Substance: FOLIC ACID
  5. SIMVASTATIN. [Concomitant]
     Active Substance: SIMVASTATIN
  6. FORTEO [Suspect]
     Active Substance: TERIPARATIDE
     Indication: OSTEOPOROSIS
     Dosage: 20 UG, DAILY (1/D)
     Dates: start: 20090715
  7. ATENOLOL. [Concomitant]
     Active Substance: ATENOLOL
  8. CELEBREX [Concomitant]
     Active Substance: CELECOXIB
  9. CALTRATE +D [Concomitant]

REACTIONS (8)
  - Cough [Unknown]
  - Syncope [Recovered/Resolved]
  - Pruritus [Not Recovered/Not Resolved]
  - Dyspnoea [Unknown]
  - Tooth disorder [Unknown]
  - Blood calcium increased [Unknown]
  - Rhinorrhoea [Unknown]
  - Weight increased [Unknown]

NARRATIVE: CASE EVENT DATE: 2010
